FAERS Safety Report 17671942 (Version 1)
Quarter: 2020Q2

REPORT INFORMATION
  Report Type: Spontaneous
  Country: JP (occurrence: JP)
  Receive Date: 20200415
  Receipt Date: 20200415
  Transmission Date: 20200713
  Serious: Yes (Other)
  Sender: FDA-Public Use
  Company Number: JP-FRESENIUS KABI-FK202003774

PATIENT
  Age: 48 Year
  Sex: Male

DRUGS (1)
  1. FUROSEMIDE (MANUFACTURER UNKNOWN) [Suspect]
     Active Substance: FUROSEMIDE
     Indication: OEDEMA
     Route: 042

REACTIONS (2)
  - Oedema [Recovered/Resolved]
  - Confusional state [Recovered/Resolved]
